FAERS Safety Report 11812706 (Version 1)
Quarter: 2015Q4

REPORT INFORMATION
  Report Type: Other
  Country: TR (occurrence: TR)
  Receive Date: 20151208
  Receipt Date: 20151208
  Transmission Date: 20160305
  Serious: Yes (Hospitalization)
  Sender: FDA-Public Use
  Company Number: TR-HETERO LABS LTD-1045230

PATIENT
  Age: 35 Year
  Sex: Female

DRUGS (4)
  1. ARIPIPRAZOLE. [Suspect]
     Active Substance: ARIPIPRAZOLE
     Indication: OBSESSIVE-COMPULSIVE DISORDER
  2. SERTRALINE [Concomitant]
     Active Substance: SERTRALINE HYDROCHLORIDE
  3. PREDNISOLONE. [Concomitant]
     Active Substance: PREDNISOLONE
  4. FUROSEMIDE. [Concomitant]
     Active Substance: FUROSEMIDE

REACTIONS (2)
  - Drug interaction [Recovered/Resolved]
  - Non-cardiogenic pulmonary oedema [Recovered/Resolved]
